FAERS Safety Report 13669494 (Version 2)
Quarter: 2017Q2

REPORT INFORMATION
  Report Type: Spontaneous
  Country: US (occurrence: US)
  Receive Date: 20170620
  Receipt Date: 20170622
  Transmission Date: 20170830
  Serious: No
  Sender: FDA-Public Use
  Company Number: US-BIOMARINAP-US-2017-114383

PATIENT
  Sex: Male

DRUGS (1)
  1. NO SUSPECT PRODUCT [Suspect]
     Active Substance: UNSPECIFIED INGREDIENT
     Indication: GAUCHER^S DISEASE
     Dosage: UNK
     Route: 065

REACTIONS (1)
  - Pregnancy of partner [Unknown]
